FAERS Safety Report 21825880 (Version 2)
Quarter: 2023Q2

REPORT INFORMATION
  Report Type: Report from Study
  Country: US (occurrence: US)
  Receive Date: 20230105
  Receipt Date: 20230411
  Transmission Date: 20230721
  Serious: No
  Sender: FDA-Public Use
  Company Number: US-ABBVIE-4224457

PATIENT
  Sex: Female

DRUGS (2)
  1. SKYRIZI [Suspect]
     Active Substance: RISANKIZUMAB-RZAA
     Indication: Psoriasis
     Dosage: EVENT ONSET: 2022?WEEK 0?FORM STRENGTH: 150 MILLIGRAM
     Route: 058
     Dates: start: 202209, end: 202209
  2. SKYRIZI [Suspect]
     Active Substance: RISANKIZUMAB-RZAA
     Dosage: WEEK 4?FORM STRENGTH: 150 MILLIGRAM?WEEK 0, WEEK 4, AND EVERY 12 WEEKS THEREAFTER.
     Route: 058
     Dates: start: 20221024

REACTIONS (2)
  - Scar [Unknown]
  - Psoriasis [Unknown]
